FAERS Safety Report 4905968-2 (Version None)
Quarter: 2006Q1

REPORT INFORMATION
  Report Type: 
  Country: None (occurrence: None)
  Receive Date: 20060206
  Receipt Date: 20060125
  Transmission Date: 20060701
  Serious: Yes (Other)
  Sender: FDA-Public Use
  Company Number: 2006013204

PATIENT
  Sex: Female
  Weight: 49.8957 kg

DRUGS (8)
  1. NEURONTIN [Suspect]
     Indication: PHANTOM PAIN
     Dosage: 3200 MG (400 MG, 4 IN 1 D)
  2. NEURONTIN [Suspect]
     Indication: SCIATICA
     Dosage: 3200 MG (400 MG, 4 IN 1 D)
  3. CELEBREX [Suspect]
     Indication: BACK PAIN
     Dosage: 200 MG (200 MG, 1 IN 1 D)
     Dates: start: 20060123
  4. PERCOCET [Suspect]
     Indication: INTERVERTEBRAL DISC PROTRUSION
     Dosage: (AS NECESSARY)
  5. DURAGESIC-100 [Suspect]
     Indication: ILL-DEFINED DISORDER
     Dosage: (100 MG)
  6. ZOCOR [Concomitant]
  7. FOSMAX (ALENDRONATE SODIUM) [Concomitant]
  8. ESTRATEST [Concomitant]

REACTIONS (10)
  - ANXIETY [None]
  - BACK PAIN [None]
  - CONSTIPATION [None]
  - DEATH OF RELATIVE [None]
  - DEPRESSION [None]
  - INFLAMMATION [None]
  - INTERVERTEBRAL DISC PROTRUSION [None]
  - SCIATICA [None]
  - SOMNOLENCE [None]
  - WEIGHT INCREASED [None]
